FAERS Safety Report 9530970 (Version 2)
Quarter: 2014Q1

REPORT INFORMATION
  Report Type: Report from Study
  Country: JP (occurrence: JP)
  Receive Date: 20130918
  Receipt Date: 20140312
  Transmission Date: 20141002
  Serious: Yes (Other)
  Sender: FDA-Public Use
  Company Number: JP-JNJFOC-20130907783

PATIENT
  Age: 76 Year
  Sex: Female
  Weight: 50 kg

DRUGS (14)
  1. SIMPONI [Suspect]
     Indication: RHEUMATOID ARTHRITIS
     Route: 058
     Dates: start: 20121121, end: 20121121
  2. SIMPONI [Suspect]
     Indication: RHEUMATOID ARTHRITIS
     Route: 058
     Dates: start: 20121024, end: 20121024
  3. WARFARIN [Concomitant]
     Route: 048
  4. TACROLIMUS HYDRATE [Concomitant]
     Indication: RHEUMATOID ARTHRITIS
     Route: 065
     Dates: start: 201109
  5. CELECOX [Concomitant]
     Indication: RHEUMATOID ARTHRITIS
     Route: 048
     Dates: start: 201109
  6. TAKEPRON [Concomitant]
     Indication: PROPHYLAXIS
     Route: 048
  7. NULOTAN [Concomitant]
     Route: 048
  8. MAGMITT [Concomitant]
     Route: 048
  9. GASMOTIN [Concomitant]
     Indication: PROPHYLAXIS
     Route: 048
  10. PURSENNID [Concomitant]
     Route: 065
  11. AMOBAN [Concomitant]
     Route: 048
  12. IMURAN [Concomitant]
     Indication: RHEUMATOID ARTHRITIS
     Route: 048
     Dates: end: 20121121
  13. MEDICON [Concomitant]
     Route: 048
  14. FOSAMAC [Concomitant]
     Route: 048

REACTIONS (1)
  - Hepatitis B [Recovered/Resolved]
